FAERS Safety Report 4341594-4 (Version None)
Quarter: 2004Q2

REPORT INFORMATION
  Report Type: 
  Country: None (occurrence: None)
  Receive Date: 20040419
  Receipt Date: 20040419
  Transmission Date: 20050107
  Serious: Yes (Other)
  Sender: FDA-Public Use
  Company Number: None

PATIENT
  Sex: Female
  Weight: 56.6996 kg

DRUGS (2)
  1. PAROXETINE HCL [Suspect]
     Indication: EMOTIONAL DISORDER
     Dosage: 20 MG 1 DAILY ORAL
     Route: 048
     Dates: start: 20040301, end: 20040305
  2. PAROXETINE HCL [Suspect]
     Indication: MENTAL DISORDER
     Dosage: 20 MG 1 DAILY ORAL
     Route: 048
     Dates: start: 20040301, end: 20040305

REACTIONS (4)
  - ABNORMAL BEHAVIOUR [None]
  - ANGER [None]
  - DEPRESSION [None]
  - PHARMACEUTICAL PRODUCT COMPLAINT [None]
